FAERS Safety Report 8927495 (Version 4)
Quarter: 2013Q3

REPORT INFORMATION
  Report Type: Spontaneous
  Country: NO (occurrence: NO)
  Receive Date: 20121127
  Receipt Date: 20130910
  Transmission Date: 20140515
  Serious: Yes (Hospitalization, Other)
  Sender: FDA-Public Use
  Company Number: PHHY2012NO107821

PATIENT
  Sex: Female

DRUGS (2)
  1. GILENYA [Suspect]
     Indication: MULTIPLE SCLEROSIS
  2. VIT D [Concomitant]
     Indication: MULTIPLE SCLEROSIS
     Dosage: 20 UG, UNK
     Route: 048

REACTIONS (7)
  - Angina pectoris [Recovering/Resolving]
  - Chest discomfort [Unknown]
  - Dyspnoea [Unknown]
  - Chest pain [Unknown]
  - Cough [Unknown]
  - Atrioventricular block first degree [Recovering/Resolving]
  - Hypertension [Recovering/Resolving]
